FAERS Safety Report 25241334 (Version 2)
Quarter: 2025Q3

REPORT INFORMATION
  Report Type: Report from Study
  Country: US (occurrence: US)
  Receive Date: 20250425
  Receipt Date: 20250809
  Transmission Date: 20251021
  Serious: Yes (Other)
  Sender: ALEXION PHARMACEUTICALS
  Company Number: US-AstraZeneca-CH-00853372A

PATIENT
  Age: 65 Year
  Sex: Female
  Weight: 81.646 kg

DRUGS (26)
  1. TEZEPELUMAB [Suspect]
     Active Substance: TEZEPELUMAB
     Dosage: 200 MILLIGRAM PER MILLILITRE, Q4W
     Dates: start: 202407
  2. TEZEPELUMAB [Suspect]
     Active Substance: TEZEPELUMAB
  3. SYMBICORT [Concomitant]
     Active Substance: BUDESONIDE\FORMOTEROL FUMARATE DIHYDRATE
     Dosage: USE 2 PUFFS, BID
     Route: 065
  4. AIRSUPRA [Concomitant]
     Active Substance: ALBUTEROL SULFATE\BUDESONIDE
  5. EPIPEN [Concomitant]
     Active Substance: EPINEPHRINE
     Indication: Anaphylactic reaction
     Route: 065
  6. PROAIR HFA [Concomitant]
     Active Substance: ALBUTEROL SULFATE
     Indication: Cough
  7. PROAIR HFA [Concomitant]
     Active Substance: ALBUTEROL SULFATE
     Indication: Wheezing
  8. PROAIR HFA [Concomitant]
     Active Substance: ALBUTEROL SULFATE
     Indication: Dyspnoea
  9. SINGULAIR [Concomitant]
     Active Substance: MONTELUKAST SODIUM
  10. XEMBIFY [Concomitant]
     Active Substance: HUMAN IMMUNOGLOBULIN G
  11. IPRATROPIUM [Concomitant]
     Active Substance: IPRATROPIUM
     Route: 065
  12. VITAMIN C [Concomitant]
     Active Substance: ASCORBIC ACID
     Route: 065
  13. SAMBUCUS NIGRA [Concomitant]
     Active Substance: HOMEOPATHICS
     Route: 065
  14. CALCIUM CITRATE [Concomitant]
     Active Substance: CALCIUM CITRATE
     Route: 065
  15. FISH OIL [Concomitant]
     Active Substance: FISH OIL
     Route: 065
  16. MAGNESIUM CITRATE [Concomitant]
     Active Substance: MAGNESIUM CITRATE
     Route: 065
  17. VITAMINS [Concomitant]
     Active Substance: VITAMINS
     Route: 065
  18. PROBIOTICS NOS [Concomitant]
     Active Substance: PROBIOTICS NOS
     Route: 065
  19. AMLODIPINE [Concomitant]
     Active Substance: AMLODIPINE BESYLATE
     Route: 065
  20. PRAVASTATIN SODIUM [Concomitant]
     Active Substance: PRAVASTATIN SODIUM
     Route: 065
  21. TEMAZEPAM [Concomitant]
     Active Substance: TEMAZEPAM
     Route: 065
  22. MELOXICAM [Concomitant]
     Active Substance: MELOXICAM
     Route: 065
  23. TRAMADOL HCL [Concomitant]
     Active Substance: TRAMADOL HYDROCHLORIDE
     Route: 065
  24. FLONASE [Concomitant]
     Active Substance: FLUTICASONE PROPIONATE
     Route: 065
  25. ZYRTEC [Concomitant]
     Active Substance: CETIRIZINE HYDROCHLORIDE
     Route: 065
  26. DEXAMETHASONE [Concomitant]
     Active Substance: DEXAMETHASONE
     Route: 065

REACTIONS (37)
  - Immunodeficiency [Unknown]
  - Fatigue [Recovering/Resolving]
  - Oral herpes [Recovering/Resolving]
  - Stress [Recovering/Resolving]
  - Asthma [Recovering/Resolving]
  - Nasal polyps [Recovering/Resolving]
  - Sinusitis [Recovering/Resolving]
  - Nasal congestion [Recovering/Resolving]
  - Cough [Recovering/Resolving]
  - Dyspnoea [Recovering/Resolving]
  - Dizziness [Recovering/Resolving]
  - Secretion discharge [Recovering/Resolving]
  - Oropharyngeal pain [Unknown]
  - Antibody test abnormal [Unknown]
  - Hypersensitivity [Unknown]
  - Seasonal allergy [Unknown]
  - Rhinitis allergic [Unknown]
  - Hypergammaglobulinaemia [Unknown]
  - Sinus congestion [Unknown]
  - Paranasal sinus discomfort [Unknown]
  - Swelling face [Unknown]
  - Nasal discomfort [Unknown]
  - Rhinorrhoea [Unknown]
  - Bronchitis [Unknown]
  - Root canal infection [Unknown]
  - Upper respiratory tract infection [Unknown]
  - Adverse reaction [Unknown]
  - Blood glucose abnormal [Unknown]
  - Pain [Unknown]
  - Infection [Unknown]
  - Chest discomfort [Unknown]
  - Gastrointestinal infection [Unknown]
  - Dyspnoea paroxysmal nocturnal [Unknown]
  - Nasal disorder [Unknown]
  - Rhinorrhoea [Unknown]
  - Blood potassium increased [Unknown]
  - Wheezing [Unknown]

NARRATIVE: CASE EVENT DATE: 20241101
